FAERS Safety Report 24063172 (Version 2)
Quarter: 2024Q3

REPORT INFORMATION
  Report Type: Spontaneous
  Country: US (occurrence: US)
  Receive Date: 20240709
  Receipt Date: 20240729
  Transmission Date: 20241017
  Serious: No
  Sender: ROCHE
  Company Number: US-ROCHE-10000018262

PATIENT
  Age: 54 Year
  Sex: Male

DRUGS (2)
  1. XOLAIR PFS [Suspect]
     Active Substance: OMALIZUMAB
     Indication: Asthma
     Dosage: 2 SYRINGES EVERY 2 WEEKS UNDER THE SKIN, STRENGTH 150MG/ML
     Route: 058
     Dates: start: 202107
  2. XOLAIR PFS [Suspect]
     Active Substance: OMALIZUMAB
     Indication: Idiopathic urticaria
     Dosage: 2 SYRINGES EVERY 2 WEEKS UNDER THE SKIN, STRENGTH 150MG/ML
     Route: 058
     Dates: start: 202406

REACTIONS (2)
  - Urticaria [Unknown]
  - Off label use [Unknown]

NARRATIVE: CASE EVENT DATE: 20240601
